FAERS Safety Report 16386026 (Version 1)
Quarter: 2019Q2

REPORT INFORMATION
  Report Type: Report from Study
  Country: US (occurrence: US)
  Receive Date: 20190603
  Receipt Date: 20190603
  Transmission Date: 20190711
  Serious: Yes (Death)
  Sender: FDA-Public Use
  Company Number: US-ACTELION-A-NJ2018-183945

PATIENT
  Age: 69 Year
  Sex: Female
  Weight: 80.73 kg

DRUGS (3)
  1. UPTRAVI [Suspect]
     Active Substance: SELEXIPAG
     Indication: PULMONARY ARTERIAL HYPERTENSION
     Dosage: 400 MCG IN AM, 600 MCG IN PM
     Route: 048
  2. UPTRAVI [Suspect]
     Active Substance: SELEXIPAG
     Dosage: 600 MCG, BID
     Route: 048
  3. UPTRAVI [Suspect]
     Active Substance: SELEXIPAG
     Dosage: 400 MCG, BID
     Route: 048

REACTIONS (14)
  - Therapy non-responder [Unknown]
  - Abdominal distension [Unknown]
  - Cardiac discomfort [Unknown]
  - Death [Fatal]
  - Asthenia [Unknown]
  - Peripheral swelling [Unknown]
  - Proctalgia [Unknown]
  - Haemorrhoids [Unknown]
  - Pollakiuria [Unknown]
  - Decreased appetite [Unknown]
  - Condition aggravated [Unknown]
  - Lethargy [Unknown]
  - Upper respiratory tract infection [Unknown]
  - Dyspnoea [Unknown]

NARRATIVE: CASE EVENT DATE: 201904
